FAERS Safety Report 8168637-4 (Version None)
Quarter: 2012Q1

REPORT INFORMATION
  Report Type: 
  Country: None (occurrence: None)
  Receive Date: 20120227
  Receipt Date: 20120222
  Transmission Date: 20120608
  Serious: Yes (Other)
  Sender: FDA-Public Use
  Company Number: US-ABBOTT-11P-163-0710401-00

PATIENT
  Sex: Male
  Weight: 3.348 kg

DRUGS (3)
  1. NORVIR [Suspect]
     Indication: MATERNAL EXPOSURE TIMING UNSPECIFIED
     Route: 064
  2. ATAZANAVIR SULFATE [Suspect]
     Indication: MATERNAL EXPOSURE TIMING UNSPECIFIED
     Route: 064
  3. TRUVADA [Suspect]
     Indication: MATERNAL EXPOSURE TIMING UNSPECIFIED
     Route: 064

REACTIONS (3)
  - FOETAL EXPOSURE DURING PREGNANCY [None]
  - CONGENITAL CENTRAL NERVOUS SYSTEM ANOMALY [None]
  - TALIPES [None]
